FAERS Safety Report 7584605-5 (Version None)
Quarter: 2011Q2

REPORT INFORMATION
  Report Type: 
  Country: None (occurrence: None)
  Receive Date: 20110630
  Receipt Date: 20110627
  Transmission Date: 20111010
  Serious: Yes (Life-Threatening, Hospitalization)
  Sender: FDA-Public Use
  Company Number: US-CEPHALON-2011003300

PATIENT
  Sex: Male
  Weight: 111 kg

DRUGS (16)
  1. METOPROLOL TARTRATE [Concomitant]
     Indication: HYPERTENSION
     Dates: start: 20090101
  2. DIPHENHYDRAMINE [Concomitant]
     Dates: start: 20110526
  3. ACETAMINOPHEN [Concomitant]
     Dates: start: 20110526
  4. ALLOPURINOL [Concomitant]
     Indication: PROPHYLAXIS
     Dates: start: 20110520, end: 20110603
  5. SINEMET [Concomitant]
     Dates: start: 20100610
  6. MIRAPEX [Concomitant]
     Dates: start: 20110204
  7. NEULASTA [Concomitant]
     Dates: start: 20110528, end: 20110528
  8. TREANDA [Suspect]
     Indication: MANTLE CELL LYMPHOMA
     Route: 042
     Dates: start: 20110526
  9. RITUXAN [Suspect]
     Indication: MANTLE CELL LYMPHOMA
     Route: 042
     Dates: start: 20110526
  10. SELEGILINE [Concomitant]
     Dates: start: 20110128
  11. ASPIRIN [Concomitant]
     Dates: start: 20090401
  12. POTASSIUM [Concomitant]
     Dates: start: 20090401
  13. LOVAZA [Concomitant]
     Indication: PROPHYLAXIS
  14. DEXAMETHASONE [Concomitant]
     Dates: start: 20110526
  15. ONDANSETRON [Concomitant]
     Dates: start: 20110526
  16. HYDROCHLOROTHIAZIDE [Concomitant]
     Dates: start: 20090401

REACTIONS (4)
  - HYPOTENSION [None]
  - RENAL FAILURE ACUTE [None]
  - SEPSIS [None]
  - RENAL TUBULAR NECROSIS [None]
